FAERS Safety Report 8757989 (Version 1)
Quarter: 2012Q4

REPORT INFORMATION
  Report Type: 
  Country: US (occurrence: US)
  Receive Date: 20120828
  Receipt Date: 20120828
  Transmission Date: 20130627
  Serious: Yes (Other)
  Sender: FDA-Public Use
  Company Number: US-AMGEN-USASP2012053411

PATIENT
  Age: 16 Year
  Sex: Male
  Weight: 51 kg

DRUGS (3)
  1. NEUPOGEN [Suspect]
     Indication: INFANTILE GENETIC AGRANULOCYTOSIS
     Dosage: UNK UNK, 2 times/wk
     Route: 042
     Dates: start: 2012
  2. NEUPOGEN [Suspect]
     Dosage: UNK UNK, 2 times/wk
     Route: 042
     Dates: start: 2012
  3. NEUPOGEN [Suspect]
     Dosage: UNK UNK, 2 times/wk
     Route: 042
     Dates: start: 2012

REACTIONS (2)
  - Neutrophil count decreased [Not Recovered/Not Resolved]
  - Weight increased [Not Recovered/Not Resolved]
